FAERS Safety Report 13191784 (Version 1)
Quarter: 2017Q1

REPORT INFORMATION
  Report Type: Spontaneous
  Country: US (occurrence: US)
  Receive Date: 20170206
  Receipt Date: 20170206
  Transmission Date: 20170428
  Serious: Yes (Disabling)
  Sender: FDA-Public Use
  Company Number: None

PATIENT
  Age: 48 Year
  Sex: Female
  Weight: 92.7 kg

DRUGS (2)
  1. WARFARIN [Concomitant]
     Active Substance: WARFARIN
  2. XARELTO [Suspect]
     Active Substance: RIVAROXABAN
     Indication: DEEP VEIN THROMBOSIS
     Dosage: ?          QUANTITY:1 TABLET(S);?
     Route: 048
     Dates: start: 20160218, end: 20160919

REACTIONS (6)
  - Skin haemorrhage [None]
  - Skin abrasion [None]
  - Weight increased [None]
  - Abdominal distension [None]
  - Menorrhagia [None]
  - Decreased appetite [None]

NARRATIVE: CASE EVENT DATE: 20160410
